FAERS Safety Report 4656047-3 (Version None)
Quarter: 2005Q2

REPORT INFORMATION
  Report Type: 
  Country: None (occurrence: None)
  Receive Date: 20050505
  Receipt Date: 20050421
  Transmission Date: 20051028
  Serious: Yes (Hospitalization)
  Sender: FDA-Public Use
  Company Number: SGB1-2005-00202

PATIENT
  Age: 71 Year
  Sex: Female

DRUGS (14)
  1. LANTHANUM CARBONATE (LANTHANUM CARBONATE) TABLET CHEWABLE [Suspect]
     Indication: HYPERPHOSPHATAEMIA
     Dosage: 1500 MG/DAILY, ORAL
     Route: 048
     Dates: start: 20041118, end: 20050223
  2. PANTOPRAZOLE SODIUM [Concomitant]
  3. DIOVAN (HYDROCHLOROTHIAZIDE, VALSARTAN) [Concomitant]
  4. ALLOPURINOL [Concomitant]
  5. VITARENAL [Concomitant]
  6. RESONIUM [Concomitant]
  7. TAREGIL [Concomitant]
  8. DIPYRONE TAB [Concomitant]
  9. NORVASC [Concomitant]
  10. RENAGEL [Concomitant]
  11. EUTHYROX [Concomitant]
  12. BEXTRA [Concomitant]
  13. VALORAN (CEFOTAXIME SODIUM) [Concomitant]
  14. KLACID [Concomitant]

REACTIONS (12)
  - BLOOD ALKALINE PHOSPHATASE INCREASED [None]
  - BLOOD CALCIUM DECREASED [None]
  - BLOOD CREATININE INCREASED [None]
  - BLOOD UREA DECREASED [None]
  - BONE PAIN [None]
  - BUNDLE BRANCH BLOCK LEFT [None]
  - ELECTROCARDIOGRAM POOR R-WAVE PROGRESSION [None]
  - ELECTROCARDIOGRAM REPOLARISATION ABNORMALITY [None]
  - GASTRITIS [None]
  - HIATUS HERNIA [None]
  - PRURITUS GENERALISED [None]
  - THIRST [None]
